FAERS Safety Report 5514574-0 (Version None)
Quarter: 2007Q4

REPORT INFORMATION
  Report Type: 
  Country: None (occurrence: None)
  Receive Date: 20071113
  Receipt Date: 20071109
  Transmission Date: 20080405
  Serious: Yes (Hospitalization, Other)
  Sender: FDA-Public Use
  Company Number: B0490063A

PATIENT
  Age: 55 Year
  Sex: Male
  Weight: 90 kg

DRUGS (4)
  1. ROSIGLITAZONE MALEATE [Suspect]
     Dosage: 4MG PER DAY
     Route: 048
     Dates: start: 20040121, end: 20070911
  2. ATORVASTATIN CALCIUM [Concomitant]
     Route: 048
     Dates: start: 20050725
  3. LISINOPRIL [Concomitant]
     Indication: HYPERTENSION
     Dosage: 15MG PER DAY
     Route: 048
     Dates: start: 20040115
  4. METFORMIN HCL [Concomitant]
     Dosage: 1000MG TWICE PER DAY
     Route: 048
     Dates: start: 20031120

REACTIONS (5)
  - CARDIAC FAILURE [None]
  - DYSPNOEA [None]
  - MYOCARDIAL INFARCTION [None]
  - OEDEMA PERIPHERAL [None]
  - WEIGHT INCREASED [None]
